FAERS Safety Report 22526547 (Version 4)
Quarter: 2023Q4

REPORT INFORMATION
  Report Type: Report from Study
  Country: US (occurrence: US)
  Receive Date: 20230606
  Receipt Date: 20231010
  Transmission Date: 20240110
  Serious: Yes (Hospitalization, Disabling, Other)
  Sender: FDA-Public Use
  Company Number: US-TAKEDA-2023TUS042530

PATIENT
  Sex: Male

DRUGS (1)
  1. MARIBAVIR [Suspect]
     Active Substance: MARIBAVIR
     Indication: Cytomegalovirus infection
     Dosage: 400 MILLIGRAM, BID
     Route: 048
     Dates: start: 20230509

REACTIONS (10)
  - Blood creatine increased [Recovering/Resolving]
  - Disability [Unknown]
  - Viral load increased [Unknown]
  - Muscle spasms [Unknown]
  - Renal disorder [Unknown]
  - Product availability issue [Unknown]
  - Fatigue [Unknown]
  - Taste disorder [Unknown]
  - Nausea [Unknown]
  - Diarrhoea [Unknown]
